FAERS Safety Report 8507307 (Version 4)
Quarter: 2014Q4

REPORT INFORMATION
  Report Type: Spontaneous
  Country: US (occurrence: US)
  Receive Date: 20120412
  Receipt Date: 20141223
  Transmission Date: 20150529
  Serious: Yes (Hospitalization)
  Sender: FDA-Public Use
  Company Number: US-ASTRAZENECA-2011SE41632

PATIENT
  Age: 55 Year
  Sex: Female
  Weight: 52.2 kg

DRUGS (7)
  1. NEXIUM [Suspect]
     Active Substance: ESOMEPRAZOLE MAGNESIUM
     Indication: GASTROOESOPHAGEAL REFLUX DISEASE
     Route: 048
  2. PRILOSEC [Suspect]
     Active Substance: OMEPRAZOLE MAGNESIUM
     Indication: GASTROOESOPHAGEAL REFLUX DISEASE
     Route: 048
     Dates: start: 2004
  3. NEXIUM [Suspect]
     Active Substance: ESOMEPRAZOLE MAGNESIUM
     Indication: GASTROOESOPHAGEAL REFLUX DISEASE
     Route: 048
  4. NEXIUM [Suspect]
     Active Substance: ESOMEPRAZOLE MAGNESIUM
     Indication: GASTROOESOPHAGEAL REFLUX DISEASE
     Route: 048
     Dates: end: 20141214
  5. BENAZAPRIL [Concomitant]
     Indication: HYPERTENSION
     Route: 048
     Dates: start: 2012
  6. ZOMIG [Suspect]
     Active Substance: ZOLMITRIPTAN
     Indication: MIGRAINE
     Route: 048
     Dates: start: 2011
  7. PREVACID [Concomitant]
     Active Substance: LANSOPRAZOLE

REACTIONS (16)
  - Hiatus hernia [Unknown]
  - Dry mouth [Unknown]
  - Headache [Unknown]
  - Intentional product misuse [Unknown]
  - Helicobacter infection [Unknown]
  - Intervertebral disc protrusion [Unknown]
  - Gastrooesophageal reflux disease [Unknown]
  - Pain [Unknown]
  - Dysphagia [Unknown]
  - Off label use [Unknown]
  - Mental impairment [Unknown]
  - Drug effect incomplete [Unknown]
  - Drug dose omission [Not Recovered/Not Resolved]
  - Migraine [Unknown]
  - Choking sensation [Unknown]
  - Vertigo [Unknown]

NARRATIVE: CASE EVENT DATE: 201307
